FAERS Safety Report 13958605 (Version 1)
Quarter: 2017Q3

REPORT INFORMATION
  Report Type: Spontaneous
  Country: JP (occurrence: JP)
  Receive Date: 20170911
  Receipt Date: 20170911
  Transmission Date: 20171128
  Serious: Yes (Life-Threatening, Other)
  Sender: FDA-Public Use
  Company Number: JP-MYLANLABS-2017M1056238

PATIENT
  Age: 67 Year
  Sex: Male

DRUGS (4)
  1. CISPLATIN. [Suspect]
     Active Substance: CISPLATIN
     Dosage: 50 MG/M2
     Route: 065
  2. IRINOTECAN [Suspect]
     Active Substance: IRINOTECAN
     Dosage: 50 MG/M2
     Route: 065
  3. IRINOTECAN [Suspect]
     Active Substance: IRINOTECAN
     Indication: NEUROENDOCRINE CARCINOMA
     Dosage: 60 MG/M2, DAYS 1, 8 AND 15, EVERY 28 DAYS; THE DOSE WAS FURTHER REDUCED TO 50 MG/M2
     Route: 065
     Dates: start: 201505
  4. CISPLATIN. [Suspect]
     Active Substance: CISPLATIN
     Indication: NEUROENDOCRINE CARCINOMA
     Dosage: 60 MG/M2 ON DAY 1, EVERY 28 DAYS, THE DOSE WAS FURTHER REDUCED TO 50 MG/M2
     Route: 065
     Dates: start: 201505

REACTIONS (11)
  - Hyperuricaemia [Unknown]
  - Agranulocytosis [Unknown]
  - Vomiting [Unknown]
  - Decreased appetite [Unknown]
  - Fatigue [Unknown]
  - Febrile neutropenia [Unknown]
  - Neutropenia [Recovered/Resolved]
  - Thrombocytopenia [Unknown]
  - Anaemia [Unknown]
  - Hyperkalaemia [Unknown]
  - Tumour lysis syndrome [Recovered/Resolved]
